FAERS Safety Report 9456730 (Version 1)
Quarter: 2013Q3

REPORT INFORMATION
  Report Type: Spontaneous
  Country: IE (occurrence: IE)
  Receive Date: 20130813
  Receipt Date: 20130813
  Transmission Date: 20140515
  Serious: Yes (Other)
  Sender: FDA-Public Use
  Company Number: IE-WATSON-2013-13740

PATIENT
  Age: 53 Year
  Sex: Male

DRUGS (1)
  1. SULFASALAZINE (WATSON LABORATORIES) [Suspect]
     Indication: POLYARTHRITIS
     Dosage: UNK
     Route: 065

REACTIONS (1)
  - Pulmonary eosinophilia [Recovered/Resolved]
